FAERS Safety Report 11043323 (Version 2)
Quarter: 2017Q1

REPORT INFORMATION
  Report Type: Spontaneous
  Country: US (occurrence: US)
  Receive Date: 20150417
  Receipt Date: 20170217
  Transmission Date: 20170428
  Serious: No
  Sender: FDA-Public Use
  Company Number: US-ASTRAZENECA-2015SE34285

PATIENT
  Age: 993 Month
  Sex: Female
  Weight: 41.7 kg

DRUGS (9)
  1. SYMBICORT [Suspect]
     Active Substance: BUDESONIDE\FORMOTEROL FUMARATE DIHYDRATE
     Indication: CHRONIC OBSTRUCTIVE PULMONARY DISEASE
     Dosage: 80/4.5 UG 1 PUFF TWICE DAILY AS REQUIRED
     Route: 055
     Dates: start: 2013, end: 201401
  2. SYMBICORT [Suspect]
     Active Substance: BUDESONIDE\FORMOTEROL FUMARATE DIHYDRATE
     Indication: ASTHMA
     Dosage: 80/4.5 UG 1 PUFF DAILY
     Route: 055
     Dates: start: 2013, end: 201401
  3. PANTOPRAZOLE [Concomitant]
     Active Substance: PANTOPRAZOLE SODIUM
     Indication: ABDOMINAL DISCOMFORT
     Dosage: DAILY
     Dates: start: 2014
  4. TUSSIN LIQUID [Concomitant]
     Indication: RESPIRATORY TRACT CONGESTION
     Dosage: AS NEEDED
     Dates: start: 2010
  5. SYMBICORT [Suspect]
     Active Substance: BUDESONIDE\FORMOTEROL FUMARATE DIHYDRATE
     Indication: CHRONIC OBSTRUCTIVE PULMONARY DISEASE
     Dosage: 80/4.5 UG 1 PUFF DAILY
     Route: 055
     Dates: start: 2013, end: 201401
  6. SYMBICORT [Suspect]
     Active Substance: BUDESONIDE\FORMOTEROL FUMARATE DIHYDRATE
     Indication: ASTHMA
     Dosage: 80/4.5 UG 1 PUFF TWICE DAILY AS REQUIRED
     Route: 055
     Dates: start: 2013, end: 201401
  7. PANTOPRAZOLE [Concomitant]
     Active Substance: PANTOPRAZOLE SODIUM
     Indication: GASTRITIS
     Dosage: DAILY
     Dates: start: 2014
  8. GUAIFENESIN. [Concomitant]
     Active Substance: GUAIFENESIN
  9. TUSSIN LIQUID [Concomitant]
     Indication: SECRETION DISCHARGE
     Dosage: AS NEEDED
     Dates: start: 2010

REACTIONS (3)
  - Feeling jittery [Unknown]
  - Seasonal allergy [Unknown]
  - Asthma [Recovering/Resolving]

NARRATIVE: CASE EVENT DATE: 201503
